FAERS Safety Report 15639804 (Version 1)
Quarter: 2018Q4

REPORT INFORMATION
  Report Type: Spontaneous
  Country: FR (occurrence: FR)
  Receive Date: 20181120
  Receipt Date: 20181120
  Transmission Date: 20190205
  Serious: Yes (Hospitalization)
  Sender: FDA-Public Use
  Company Number: PHHY2018FR159016

PATIENT
  Age: 70 Year
  Sex: Male

DRUGS (4)
  1. RULID [Suspect]
     Active Substance: ROXITHROMYCIN
     Indication: BRONCHOPNEUMOPATHY
     Dosage: 150 MG, Q12H
     Route: 048
     Dates: start: 20120403, end: 20120409
  2. AMOXICILLIN + CLAVULANATE POTASSIUM [Suspect]
     Active Substance: AMOXICILLIN\CLAVULANATE POTASSIUM
     Indication: PYREXIA
  3. AMOXICILLIN + CLAVULANATE POTASSIUM [Suspect]
     Active Substance: AMOXICILLIN\CLAVULANATE POTASSIUM
     Indication: DYSPNOEA
     Dosage: 1 G,TID
     Route: 048
     Dates: start: 20120330, end: 20120403
  4. AMOXICILLIN + CLAVULANATE POTASSIUM [Suspect]
     Active Substance: AMOXICILLIN\CLAVULANATE POTASSIUM
     Indication: BRONCHOPNEUMOPATHY

REACTIONS (1)
  - Purpura [Recovering/Resolving]

NARRATIVE: CASE EVENT DATE: 20120401
